FAERS Safety Report 9867080 (Version 1)
Quarter: 2014Q1

REPORT INFORMATION
  Report Type: Spontaneous
  Country: US (occurrence: None)
  Receive Date: 20140203
  Receipt Date: 20140203
  Transmission Date: 20141002
  Serious: Yes (Other)
  Sender: FDA-Public Use
  Company Number: None

PATIENT
  Age: 40 Year
  Sex: Female
  Weight: 64.86 kg

DRUGS (8)
  1. PRILOSEC [Suspect]
     Indication: COUGH
     Route: 048
     Dates: start: 20140110, end: 20140116
  2. IMITREX [Concomitant]
  3. VIT D [Concomitant]
  4. VIT B [Concomitant]
  5. CALCIUM [Concomitant]
  6. NASONEX [Concomitant]
  7. MIGRELIEF [Concomitant]
  8. NAPROXEN [Concomitant]

REACTIONS (3)
  - Headache [None]
  - Palpitations [None]
  - Abdominal pain upper [None]
